FAERS Safety Report 26172059 (Version 1)
Quarter: 2025Q4

REPORT INFORMATION
  Report Type: Spontaneous
  Country: US (occurrence: US)
  Receive Date: 20251217
  Receipt Date: 20251217
  Transmission Date: 20260118
  Serious: No
  Sender: BRISTOL-MYERS SQUIBB COMPANY
  Company Number: US-BRISTOL-MYERS SQUIBB COMPANY-2025-169668

PATIENT
  Age: 65 Year
  Sex: Female
  Weight: 74.39 kg

DRUGS (1)
  1. POMALYST [Suspect]
     Active Substance: POMALIDOMIDE
     Indication: Primary amyloidosis
     Route: 048

REACTIONS (2)
  - Nausea [Not Recovered/Not Resolved]
  - Off label use [Unknown]
